FAERS Safety Report 4822393-3 (Version None)
Quarter: 2005Q4

REPORT INFORMATION
  Report Type: 
  Country: None (occurrence: None)
  Receive Date: 20051104
  Receipt Date: 20051104
  Transmission Date: 20060501
  Serious: Yes (Hospitalization)
  Sender: FDA-Public Use
  Company Number: None

PATIENT
  Age: 46 Year
  Sex: Female

DRUGS (1)
  1. FENTANYL [Suspect]
     Indication: PAIN
     Dosage: 300 MG   IV
     Route: 042
     Dates: start: 20050928, end: 20050928

REACTIONS (2)
  - CONVULSION [None]
  - SKIN DISCOLOURATION [None]
